FAERS Safety Report 4699662-3 (Version None)
Quarter: 2005Q2

REPORT INFORMATION
  Report Type: 
  Country: None (occurrence: None)
  Receive Date: 20050623
  Receipt Date: 20050614
  Transmission Date: 20051028
  Serious: Yes (Life-Threatening, Hospitalization)
  Sender: FDA-Public Use
  Company Number: 2005073614

PATIENT
  Age: 65 Year
  Sex: Female
  Weight: 68 kg

DRUGS (5)
  1. CABERGOLINE [Suspect]
     Indication: RESTLESS LEGS SYNDROME
     Dosage: 2 MG (2 MG, DAILY) ORAL
     Route: 048
     Dates: start: 20000101, end: 20040101
  2. ACETYLSALICYLIC ACID SRT [Concomitant]
  3. ISOMONIT (ISOSORBIDE DINITRATE0 [Concomitant]
  4. LOVASTATIN [Concomitant]
  5. CARVEDILOL [Concomitant]

REACTIONS (5)
  - AORTIC VALVE CALCIFICATION [None]
  - AORTIC VALVE INCOMPETENCE [None]
  - AORTIC VALVE SCLEROSIS [None]
  - CORONARY ARTERY SURGERY [None]
  - HYPERTENSION [None]
